FAERS Safety Report 8474531-1 (Version None)
Quarter: 2012Q2

REPORT INFORMATION
  Report Type: 
  Country: None (occurrence: None)
  Receive Date: 20120628
  Receipt Date: 20120620
  Transmission Date: 20120825
  Serious: Yes (Hospitalization)
  Sender: FDA-Public Use
  Company Number: ES-B.I. PHARMACEUTICALS,INC./RIDGEFIELD-2012-ES-00264ES

PATIENT
  Sex: Male

DRUGS (8)
  1. ESTOMIL FLAS [Concomitant]
     Dosage: 30 MG
     Route: 048
  2. AKINETON [Concomitant]
     Route: 048
  3. BALZAK PLUS [Concomitant]
     Dosage: 20 MG / 5 MG / 12,5 MG
     Route: 048
  4. NOCTAMID [Concomitant]
     Route: 048
  5. HALOPERIDOL [Concomitant]
     Route: 048
  6. LANIRAPID [Concomitant]
     Route: 048
  7. PRADAXA [Suspect]
     Indication: ATRIAL FIBRILLATION
     Dosage: 220 MG
     Route: 048
     Dates: start: 20111214, end: 20120524
  8. ASPIRIN [Suspect]
     Dosage: 100 MG
     Route: 048
     Dates: start: 20101001, end: 20120524

REACTIONS (2)
  - RENAL IMPAIRMENT [None]
  - RECTAL HAEMORRHAGE [None]
